FAERS Safety Report 17545056 (Version 1)
Quarter: 2020Q1

REPORT INFORMATION
  Report Type: Spontaneous
  Country: FR (occurrence: FR)
  Receive Date: 20200316
  Receipt Date: 20200316
  Transmission Date: 20200409
  Serious: Yes (Other)
  Sender: FDA-Public Use
  Company Number: FR-MACLEODS PHARMACEUTICALS US LTD-MAC2020025608

PATIENT

DRUGS (2)
  1. LAMIVUDINE. [Suspect]
     Active Substance: LAMIVUDINE
     Indication: PROPHYLAXIS AGAINST HIV INFECTION
     Dosage: UNK, LIQUID FORMULATION
     Route: 065
  2. ZIDOVUDINE. [Suspect]
     Active Substance: ZIDOVUDINE
     Indication: PROPHYLAXIS AGAINST HIV INFECTION
     Dosage: UNK, LIQUID FORMULATIONS
     Route: 065

REACTIONS (5)
  - Diarrhoea [Recovered/Resolved]
  - Small intestinal haemorrhage [Recovered/Resolved]
  - Intestinal ulcer [Recovered/Resolved]
  - Melaena [Recovered/Resolved]
  - Insomnia [Recovered/Resolved]
